FAERS Safety Report 9202586 (Version 2)
Quarter: 2013Q2

REPORT INFORMATION
  Report Type: Spontaneous
  Country: US (occurrence: US)
  Receive Date: 20130401
  Receipt Date: 20130510
  Transmission Date: 20140414
  Serious: Yes (Other)
  Sender: FDA-Public Use
  Company Number: US-ELI_LILLY_AND_COMPANY-US201303008704

PATIENT
  Sex: Male
  Weight: 70.75 kg

DRUGS (2)
  1. FORTEO [Suspect]
     Indication: OSTEOPOROSIS
     Dosage: UNK, QD
  2. TRAMADOL [Concomitant]

REACTIONS (2)
  - Grand mal convulsion [Recovered/Resolved]
  - Weight decreased [Unknown]
